FAERS Safety Report 5950064-9 (Version None)
Quarter: 2008Q4

REPORT INFORMATION
  Report Type: 
  Country: None (occurrence: None)
  Receive Date: 20081112
  Receipt Date: 20081104
  Transmission Date: 20090506
  Serious: Yes (Hospitalization)
  Sender: FDA-Public Use
  Company Number: BR-ROCHE-595760

PATIENT
  Sex: Female
  Weight: 72 kg

DRUGS (3)
  1. BONIVA [Suspect]
     Indication: OSTEOPOROSIS
     Route: 048
     Dates: start: 20060901, end: 20080401
  2. UNSPECIFIED DRUG [Concomitant]
     Indication: BLOOD PRESSURE ABNORMAL
  3. ASPIRIN [Concomitant]

REACTIONS (3)
  - ANGINA PECTORIS [None]
  - GASTRITIS [None]
  - OESOPHAGEAL DISCOMFORT [None]
